FAERS Safety Report 4371099-6 (Version None)
Quarter: 2004Q2

REPORT INFORMATION
  Report Type: 
  Country: None (occurrence: None)
  Receive Date: 20040604
  Receipt Date: 20040525
  Transmission Date: 20050107
  Serious: Yes (Other)
  Sender: FDA-Public Use
  Company Number: PHBS2004JP07030

PATIENT
  Sex: Male

DRUGS (1)
  1. DIOVAN [Suspect]
     Route: 048
     Dates: end: 20040501

REACTIONS (2)
  - CREATININE RENAL CLEARANCE DECREASED [None]
  - URINE OUTPUT DECREASED [None]
